FAERS Safety Report 18731563 (Version 1)
Quarter: 2021Q1

REPORT INFORMATION
  Report Type: Spontaneous
  Country: FR (occurrence: FR)
  Receive Date: 20210112
  Receipt Date: 20210112
  Transmission Date: 20210419
  Serious: Yes (Life-Threatening)
  Sender: FDA-Public Use
  Company Number: FR-009507513-2101FRA001677

PATIENT
  Age: 40 Year
  Sex: Female
  Weight: 118 kg

DRUGS (12)
  1. ESMERON [Suspect]
     Active Substance: ROCURONIUM BROMIDE
     Indication: ANAESTHESIA
     Dosage: 100 MILLIGRAM
     Route: 042
     Dates: start: 20190125
  2. BROMAZEPAM [Concomitant]
     Active Substance: BROMAZEPAM
     Dosage: UNK
     Route: 048
  3. SPASFON [Concomitant]
     Dosage: UNK
     Route: 048
  4. BETAMETHASONE SODIUM PHOSPHATE [Suspect]
     Active Substance: BETAMETHASONE SODIUM PHOSPHATE
     Indication: ANAESTHESIA
     Dosage: 4 MILLIGRAM
     Route: 042
     Dates: start: 20190125
  5. SKUDEXUM [Concomitant]
     Active Substance: DEXKETOPROFEN\TRAMADOL
     Dosage: UNK
     Route: 048
  6. DIPRIVAN [Suspect]
     Active Substance: PROPOFOL
     Indication: ANAESTHESIA
     Dosage: 300 MILLIGRAM
     Route: 042
     Dates: start: 20190125
  7. PROZAC [Concomitant]
     Active Substance: FLUOXETINE HYDROCHLORIDE
     Dosage: UNK
     Route: 048
  8. ANTADYS [Concomitant]
     Active Substance: FLURBIPROFEN
     Dosage: UNK
     Route: 048
  9. SUFENTANIL [Suspect]
     Active Substance: SUFENTANIL
     Indication: ANAESTHESIA
     Dosage: 25 MILLIGRAM
     Route: 042
     Dates: start: 20190125
  10. VOGALENE [Concomitant]
     Active Substance: METOPIMAZINE
     Dosage: UNK
     Route: 048
  11. ESOMEPRAZOLE. [Concomitant]
     Active Substance: ESOMEPRAZOLE MAGNESIUM
     Dosage: UNK
     Route: 048
  12. ACETAMINOPHEN. [Concomitant]
     Active Substance: ACETAMINOPHEN
     Dosage: UNK
     Route: 048

REACTIONS (1)
  - Anaphylactic shock [Recovered/Resolved]

NARRATIVE: CASE EVENT DATE: 20190125
